FAERS Safety Report 15904324 (Version 1)
Quarter: 2019Q1

REPORT INFORMATION
  Report Type: Spontaneous
  Country: FR (occurrence: FR)
  Receive Date: 20190204
  Receipt Date: 20190204
  Transmission Date: 20190417
  Serious: Yes (Hospitalization)
  Sender: FDA-Public Use
  Company Number: FR-TEVA-2019-FR-1006038

PATIENT
  Age: 12 Year
  Sex: Female
  Weight: 44.6 kg

DRUGS (18)
  1. VANCOMYCINE [Suspect]
     Active Substance: VANCOMYCIN
     Indication: PYREXIA
     Dosage: 64 MG/KG DAILY;
     Route: 042
     Dates: start: 20181023, end: 20181126
  2. MIDAZOLAM [Concomitant]
     Active Substance: MIDAZOLAM HYDROCHLORIDE
     Indication: PRODUCT USED FOR UNKNOWN INDICATION
     Route: 042
     Dates: start: 20181010, end: 20181128
  3. PIPERACILLINE BASE [Concomitant]
     Active Substance: PIPERACILLIN SODIUM
     Indication: PYREXIA
     Dosage: 12 GRAM DAILY;
     Route: 042
     Dates: start: 20181023, end: 20181114
  4. ONDANSETRON [Concomitant]
     Active Substance: ONDANSETRON
     Indication: NAUSEA
     Route: 042
     Dates: start: 20181017, end: 20181128
  5. POLARAMINE [Concomitant]
     Active Substance: DEXCHLORPHENIRAMINE MALEATE
     Indication: PRODUCT USED FOR UNKNOWN INDICATION
     Route: 042
     Dates: start: 20181013, end: 20181014
  6. CIPROFLOXACINE [Suspect]
     Active Substance: CIPROFLOXACIN
     Indication: PYREXIA
     Dosage: 1200 MILLIGRAM DAILY;
     Route: 042
     Dates: start: 20181109, end: 20181130
  7. MEROPENEM ANHYDRE [Suspect]
     Active Substance: MEROPENEM
     Indication: PYREXIA
     Dosage: 60 MG/KG DAILY;
     Route: 042
     Dates: start: 20181114, end: 20181130
  8. NEFOPAM (CHLORHYDRATE DE) [Concomitant]
     Active Substance: NEFOPAM HYDROCHLORIDE
     Route: 042
     Dates: start: 20181017, end: 20181205
  9. GRANOCYTE [Suspect]
     Active Substance: LENOGRASTIM
     Indication: APLASIA
     Dosage: 34 MU DAILY;
     Route: 042
     Dates: start: 20181118, end: 20181203
  10. BACTRIM [Suspect]
     Active Substance: SULFAMETHOXAZOLE\TRIMETHOPRIM
     Indication: PROPHYLAXIS
     Dosage: 800/160MG PER DAY
     Route: 042
     Dates: start: 20181023, end: 20181128
  11. HYDROXYZINE (CHLORHYDRATE D^) [Concomitant]
     Active Substance: HYDROXYZINE HYDROCHLORIDE
     Indication: PRODUCT USED FOR UNKNOWN INDICATION
     Route: 042
     Dates: start: 20181115, end: 20181205
  12. PLITICAN [Concomitant]
     Active Substance: ALIZAPRIDE HYDROCHLORIDE
     Indication: NAUSEA
     Route: 042
     Dates: start: 20181016, end: 20181022
  13. NALBUPHINE (CHLORHYDRATE DE) [Concomitant]
     Indication: PAIN
     Route: 042
     Dates: start: 20181010, end: 20181128
  14. TAZOBACTAM [Concomitant]
     Active Substance: TAZOBACTAM
     Indication: PYREXIA
     Dosage: 12 GRAM DAILY;
     Route: 042
     Dates: start: 20181023, end: 20181114
  15. AMBISOME [Suspect]
     Active Substance: AMPHOTERICIN B
     Indication: PYREXIA
     Dosage: 3 MG/KG DAILY;
     Route: 042
     Dates: start: 20181106, end: 20181128
  16. KETAMINE [Concomitant]
     Active Substance: KETAMINE
     Indication: PAIN
     Route: 042
     Dates: start: 20181123, end: 20181207
  17. METRONIDAZOLE. [Concomitant]
     Active Substance: METRONIDAZOLE
     Indication: CLOSTRIDIAL INFECTION
     Dosage: 1500 MILLIGRAM DAILY;
     Route: 042
     Dates: start: 20181025, end: 20181104
  18. OMEPRAZOLE. [Concomitant]
     Active Substance: OMEPRAZOLE
     Indication: PRODUCT USED FOR UNKNOWN INDICATION
     Route: 042
     Dates: start: 20181026, end: 20181205

REACTIONS (1)
  - Rash maculo-papular [Recovered/Resolved]

NARRATIVE: CASE EVENT DATE: 20181126
